FAERS Safety Report 10213794 (Version 1)
Quarter: 2014Q2

REPORT INFORMATION
  Report Type: Spontaneous
  Country: DK (occurrence: DK)
  Receive Date: 20140603
  Receipt Date: 20140603
  Transmission Date: 20141212
  Serious: Yes (Life-Threatening)
  Sender: FDA-Public Use
  Company Number: DK-PFIZER INC-2014148404

PATIENT
  Age: 66 Year
  Sex: Male

DRUGS (3)
  1. METHOTREXATE [Suspect]
     Indication: PSORIATIC ARTHROPATHY
     Route: 065
  2. METHYLPREDNISOLONE SODIUM SUCCINATE [Suspect]
     Dosage: 40 MG TWICE DAILY
     Route: 042
  3. PREDNISOLONE [Suspect]
     Indication: INFLAMMATORY BOWEL DISEASE
     Route: 065

REACTIONS (2)
  - Amoebic dysentery [Recovered/Resolved]
  - Necrotising colitis [Recovered/Resolved]
